FAERS Safety Report 7805027 (Version 2)
Quarter: 2013Q4

REPORT INFORMATION
  Report Type: Spontaneous
  Country: US (occurrence: None)
  Receive Date: 20110119
  Receipt Date: 20131120
  Transmission Date: 20140711
  Serious: Yes (Other)
  Sender: FDA-Public Use
  Company Number: JPI-P-013445

PATIENT
  Age: 54 Year
  Sex: Female
  Weight: 52.16 kg

DRUGS (8)
  1. XYREM [Suspect]
     Indication: NARCOLEPSY
     Dosage: (2 IN 1 D), ORAL, 9 GM (4.5 GM, 2 IN 1 D), ORAL
     Route: 048
     Dates: start: 20091229
  2. FLUOXETINE HYDROCHLORIDE [Concomitant]
  3. FLUTICASONE PROPIONATE [Concomitant]
  4. LORATADINE [Concomitant]
  5. ARMODAFINIL [Concomitant]
  6. OMERPRAZOLE [Concomitant]
  7. SYNTHROID [Concomitant]
  8. VITAMINS NOS [Concomitant]

REACTIONS (7)
  - Myasthenia gravis [None]
  - Dysphonia [None]
  - Vocal cord disorder [None]
  - Eye pain [None]
  - Asthenia [None]
  - Neck pain [None]
  - Fatigue [None]
